FAERS Safety Report 9031630 (Version 3)
Quarter: 2013Q1

REPORT INFORMATION
  Report Type: Report from Study
  Country: US (occurrence: US)
  Receive Date: 20130124
  Receipt Date: 20130125
  Transmission Date: 20140127
  Serious: Yes (Death, Other)
  Sender: FDA-Public Use
  Company Number: US-ROCHE-1183244

PATIENT
  Sex: Male
  Weight: 72.64 kg

DRUGS (21)
  1. AVASTIN [Suspect]
     Indication: BLADDER CANCER
     Route: 042
     Dates: start: 201112
  2. AVASTIN [Suspect]
     Indication: BONE CANCER
     Route: 042
     Dates: start: 20120723
  3. AVASTIN [Suspect]
     Indication: BONE CANCER
     Route: 042
     Dates: start: 20120806
  4. AVASTIN [Suspect]
     Route: 042
     Dates: start: 20120820
  5. AVASTIN [Suspect]
     Route: 042
     Dates: start: 20120906
  6. AVASTIN [Suspect]
     Route: 042
     Dates: start: 20120920
  7. AVASTIN [Suspect]
     Route: 042
     Dates: start: 20121004
  8. XGEVA [Concomitant]
     Indication: BLADDER CANCER
     Route: 058
     Dates: start: 201112, end: 20120410
  9. XGEVA [Concomitant]
     Route: 065
     Dates: start: 20120621
  10. AFINITOR [Concomitant]
     Route: 065
  11. VOTRIENT [Concomitant]
     Route: 065
  12. FENTANYL PATCH [Concomitant]
     Indication: PAIN
     Route: 065
  13. ARANESP [Concomitant]
  14. OXYCONTIN [Concomitant]
     Dosage: 20-40 MG TWICE DAILY
     Route: 065
  15. RADIATION [Concomitant]
  16. PERCOCET [Concomitant]
     Indication: BREAKTHROUGH PAIN
  17. HYDROCORTISONE [Concomitant]
     Dosage: 1% APPLY 1 APPLICATION TO AFFECTED AREA
     Route: 065
  18. NORVASC [Concomitant]
     Route: 048
  19. DECADRON [Concomitant]
     Route: 065
  20. BENADRYL (UNITED STATES) [Concomitant]
     Route: 065
  21. SODIUM PHENYLBUTYRATE [Concomitant]
     Route: 065

REACTIONS (10)
  - Bladder cancer [Fatal]
  - Disease progression [Fatal]
  - Anaemia [Recovering/Resolving]
  - Pain [Unknown]
  - Nausea [Unknown]
  - Gastric disorder [Unknown]
  - Fatigue [Unknown]
  - Local swelling [Unknown]
  - Gait disturbance [Unknown]
  - Decreased appetite [Unknown]
